FAERS Safety Report 4314371-8 (Version None)
Quarter: 2004Q1

REPORT INFORMATION
  Report Type: 
  Country: None (occurrence: None)
  Receive Date: 20040308
  Receipt Date: 20040219
  Transmission Date: 20041129
  Serious: Yes (Other)
  Sender: FDA-Public Use
  Company Number: 200402195

PATIENT
  Age: 78 Year
  Sex: Female

DRUGS (7)
  1. EXTRA STRENGTH TYLENOL [Suspect]
     Dosage: 1000 MG Q PM
     Dates: start: 20030201, end: 20030101
  2. LASIX [Concomitant]
  3. UNSPECIFIED HEART MEDICATION [Concomitant]
  4. CALCIUM [Concomitant]
  5. ASPIRIN [Concomitant]
  6. ZOCOR [Concomitant]
  7. MULTIVITAMIN [Concomitant]

REACTIONS (1)
  - RENAL IMPAIRMENT [None]
